FAERS Safety Report 10191865 (Version 2)
Quarter: 2014Q2

REPORT INFORMATION
  Report Type: Spontaneous
  Country: US (occurrence: US)
  Receive Date: 20140523
  Receipt Date: 20140523
  Transmission Date: 20141212
  Serious: No
  Sender: FDA-Public Use
  Company Number: US-AMGEN INC.-USASP2014024790

PATIENT
  Age: 56 Year
  Sex: Female
  Weight: 53.06 kg

DRUGS (7)
  1. PROLIA [Suspect]
     Indication: OSTEOPOROSIS POSTMENOPAUSAL
     Dosage: UNK UNK, Q6MO
     Route: 030
     Dates: start: 20140320
  2. LEXAPRO                            /01588501/ [Concomitant]
  3. SEROQUEL [Concomitant]
  4. B12-VITAMIIN [Concomitant]
  5. MORPHINE [Concomitant]
     Indication: PAIN
  6. LEVOTHYROXINE [Concomitant]
  7. CLONAZEPAM [Concomitant]

REACTIONS (4)
  - Fibromyalgia [Unknown]
  - Asthenia [Unknown]
  - Fatigue [Unknown]
  - Somnolence [Unknown]
